FAERS Safety Report 6096853-4 (Version None)
Quarter: 2009Q1

REPORT INFORMATION
  Report Type: 
  Country: None (occurrence: None)
  Receive Date: 20090225
  Receipt Date: 20090225
  Transmission Date: 20090719
  Serious: Yes (Hospitalization)
  Sender: FDA-Public Use
  Company Number: None

PATIENT
  Sex: Male
  Weight: 83.9 kg

DRUGS (1)
  1. CISPLATIN [Suspect]
     Dosage: 293 MG
     Dates: end: 20090130

REACTIONS (3)
  - DEHYDRATION [None]
  - MALNUTRITION [None]
  - WEIGHT DECREASED [None]
